FAERS Safety Report 21684961 (Version 1)
Quarter: 2022Q4

REPORT INFORMATION
  Report Type: Report from Study
  Country: US (occurrence: US)
  Receive Date: 20221205
  Receipt Date: 20221205
  Transmission Date: 20230113
  Serious: No
  Sender: FDA-Public Use
  Company Number: US-ABBVIE-4182585

PATIENT
  Sex: Male
  Weight: 85.27 kg

DRUGS (5)
  1. RINVOQ [Suspect]
     Active Substance: UPADACITINIB
     Indication: Crohn^s disease
     Route: 048
  2. VITAMIN D-400 10 MCG TABLET [Concomitant]
     Indication: Product used for unknown indication
     Route: 065
  3. STELARA [Suspect]
     Active Substance: USTEKINUMAB
     Indication: Product used for unknown indication
     Route: 065
  4. MULTIVITAMINS TABLET [Concomitant]
     Indication: Product used for unknown indication
     Route: 065
  5. IRON 325(65) MG TABLET [Concomitant]
     Indication: Product used for unknown indication
     Route: 065

REACTIONS (1)
  - Mental disorder [Not Recovered/Not Resolved]
